FAERS Safety Report 16355185 (Version 3)
Quarter: 2019Q2

REPORT INFORMATION
  Report Type: Report from Study
  Country: US (occurrence: US)
  Receive Date: 20190524
  Receipt Date: 20190624
  Transmission Date: 20190711
  Serious: Yes (Hospitalization, Other)
  Sender: FDA-Public Use
  Company Number: US-GILEAD-2019-0409887

PATIENT
  Age: 35 Year
  Sex: Female

DRUGS (13)
  1. ADVAIR HFA [Concomitant]
     Active Substance: FLUTICASONE PROPIONATE\SALMETEROL XINAFOATE
  2. NIFEDIPINE. [Concomitant]
     Active Substance: NIFEDIPINE
  3. DOXYCLINE [DOXYCYCLINE] [Suspect]
     Active Substance: DOXYCYCLINE
     Indication: PRODUCT USED FOR UNKNOWN INDICATION
     Route: 065
  4. OXYCODONE [Concomitant]
     Active Substance: OXYCODONE
  5. NALOXONE [Concomitant]
     Active Substance: NALOXONE
  6. CREON [Concomitant]
     Active Substance: PANCRELIPASE AMYLASE\PANCRELIPASE LIPASE\PANCRELIPASE PROTEASE
  7. AZTREONAM LYSINE [Suspect]
     Active Substance: AZTREONAM LYSINE
     Indication: CYSTIC FIBROSIS
     Dosage: 75 MG, TID
     Dates: start: 20140627
  8. BUPROPION. [Concomitant]
     Active Substance: BUPROPION
  9. NAPROXEN. [Concomitant]
     Active Substance: NAPROXEN
  10. PULMOZYME [Concomitant]
     Active Substance: DORNASE ALFA
  11. CLONAZEPAM. [Concomitant]
     Active Substance: CLONAZEPAM
  12. PULMOZYME [Suspect]
     Active Substance: DORNASE ALFA
     Dosage: 2.5 ML, BID
     Route: 055
  13. CIPROFLOXACIN. [Suspect]
     Active Substance: CIPROFLOXACIN
     Indication: PRODUCT USED FOR UNKNOWN INDICATION
     Route: 065

REACTIONS (3)
  - Arthritis infective [Recovered/Resolved]
  - Drug hypersensitivity [Not Recovered/Not Resolved]
  - Cystic fibrosis [Unknown]

NARRATIVE: CASE EVENT DATE: 20190430
